FAERS Safety Report 10204184 (Version 1)
Quarter: 2014Q2

REPORT INFORMATION
  Report Type: Report from Study
  Country: US (occurrence: US)
  Receive Date: 20140529
  Receipt Date: 20140529
  Transmission Date: 20141212
  Serious: Yes (Other)
  Sender: FDA-Public Use
  Company Number: US-ABBVIE-14P-163-1239403-00

PATIENT
  Age: 74 Year
  Sex: Male
  Weight: 75.36 kg

DRUGS (5)
  1. HUMIRA [Suspect]
     Indication: RHEUMATOID ARTHRITIS
     Route: 058
     Dates: start: 2006
  2. HUMIRA [Suspect]
     Indication: RHEUMATOID ARTHRITIS
     Route: 058
  3. ATENOLOL [Concomitant]
     Indication: HYPERTENSION
  4. ALAHIST PE [Concomitant]
     Indication: HYPERSENSITIVITY
  5. CADUET [Concomitant]
     Indication: HYPERTENSION
     Dosage: 10/20MG

REACTIONS (15)
  - Gait disturbance [Recovering/Resolving]
  - Intervertebral disc degeneration [Not Recovered/Not Resolved]
  - Dysuria [Recovered/Resolved]
  - Urinary retention [Recovered/Resolved]
  - Benign prostatic hyperplasia [Recovered/Resolved]
  - Back pain [Recovering/Resolving]
  - Paraesthesia [Recovering/Resolving]
  - Thrombosis [Recovered/Resolved]
  - Animal bite [Recovering/Resolving]
  - Exostosis [Not Recovered/Not Resolved]
  - Pain in extremity [Recovered/Resolved]
  - Arthralgia [Not Recovered/Not Resolved]
  - Pain in extremity [Not Recovered/Not Resolved]
  - Injection site bruising [Recovered/Resolved]
  - Injection site haemorrhage [Recovered/Resolved]
